FAERS Safety Report 4665499-4 (Version None)
Quarter: 2005Q2

REPORT INFORMATION
  Report Type: 
  Country: None (occurrence: None)
  Receive Date: 20050519
  Receipt Date: 20050201
  Transmission Date: 20051028
  Serious: No
  Sender: FDA-Public Use
  Company Number: US-BRISTOL-MYERS SQUIBB COMPANY-12844361

PATIENT
  Age: 11 Year
  Sex: Female
  Weight: 86 kg

DRUGS (5)
  1. CYTOXAN [Suspect]
  2. PREDNISONE [Concomitant]
  3. ZANTAC [Concomitant]
  4. IRON [Concomitant]
  5. BACTRIM [Concomitant]

REACTIONS (2)
  - FATIGUE [None]
  - PALLOR [None]
